FAERS Safety Report 17820247 (Version 1)
Quarter: 2020Q2

REPORT INFORMATION
  Report Type: Report from Study
  Country: US (occurrence: US)
  Receive Date: 20200525
  Receipt Date: 20200525
  Transmission Date: 20200714
  Serious: No
  Sender: FDA-Public Use
  Company Number: US-BIOVITRUM-BVT-000506

PATIENT
  Age: 8 Year
  Sex: Female
  Weight: 24 kg

DRUGS (2)
  1. KINERET [Suspect]
     Active Substance: ANAKINRA
     Indication: DEFICIENCY OF THE INTERLEUKIN-1 RECEPTOR ANTAGONIST
  2. FOLIC ACID. [Concomitant]
     Active Substance: FOLIC ACID
     Indication: STOMATITIS
     Dosage: 0.5 MG 1X1 DAILY
     Route: 048

REACTIONS (3)
  - Therapeutic product ineffective for unapproved indication [Unknown]
  - Drug specific antibody present [Unknown]
  - Neutralising antibodies negative [Unknown]

NARRATIVE: CASE EVENT DATE: 20100516
